FAERS Safety Report 19834928 (Version 2)
Quarter: 2021Q4

REPORT INFORMATION
  Report Type: Report from Study
  Country: US (occurrence: US)
  Receive Date: 20210915
  Receipt Date: 20211104
  Transmission Date: 20220303
  Serious: Yes (Death, Other)
  Sender: FDA-Public Use
  Company Number: US-ABBVIE-21K-163-4078240-00

PATIENT
  Age: 79 Year
  Sex: Male
  Weight: 72.640 kg

DRUGS (23)
  1. IMBRUVICA [Suspect]
     Active Substance: IBRUTINIB
     Indication: Mantle cell lymphoma
     Route: 048
     Dates: start: 20200101, end: 20210825
  2. PYRIDOSTIGMINE BROMIDE [Concomitant]
     Active Substance: PYRIDOSTIGMINE BROMIDE
     Indication: Myasthenia gravis
     Route: 048
     Dates: start: 202004
  3. MIRTAZAPINE [Concomitant]
     Active Substance: MIRTAZAPINE
     Indication: Product used for unknown indication
     Route: 048
  4. METFORMIN HYDROCHLORIDE [Concomitant]
     Active Substance: METFORMIN HYDROCHLORIDE
     Indication: Product used for unknown indication
     Route: 048
  5. LISINOPRIL [Concomitant]
     Active Substance: LISINOPRIL
     Indication: Product used for unknown indication
     Route: 048
  6. LEVOTHYROXINE SODIUM [Concomitant]
     Active Substance: LEVOTHYROXINE SODIUM
     Indication: Product used for unknown indication
     Route: 048
  7. INSULIN GLARGINE [Concomitant]
     Active Substance: INSULIN GLARGINE
     Indication: Product used for unknown indication
     Dosage: UNIT/ML
     Route: 058
  8. FUROSEMIDE [Concomitant]
     Active Substance: FUROSEMIDE
     Indication: Product used for unknown indication
     Route: 048
  9. CLOPIDOGREL BISULFATE [Concomitant]
     Active Substance: CLOPIDOGREL BISULFATE
     Indication: Product used for unknown indication
     Route: 048
  10. ASPIRIN [Concomitant]
     Active Substance: ASPIRIN
     Indication: Product used for unknown indication
     Route: 048
  11. TRAVATAN Z [Concomitant]
     Active Substance: TRAVOPROST
     Indication: Product used for unknown indication
     Route: 047
  12. RITUXAN [Concomitant]
     Active Substance: RITUXIMAB
     Indication: Product used for unknown indication
     Dates: start: 202001
  13. BENDAMUSTINE [Concomitant]
     Active Substance: BENDAMUSTINE
     Indication: Product used for unknown indication
     Dates: start: 202001
  14. CETIRIZINE HCL [Concomitant]
     Active Substance: CETIRIZINE HYDROCHLORIDE
     Indication: Product used for unknown indication
     Route: 048
  15. CLARITIN [Concomitant]
     Active Substance: LORATADINE
     Indication: Product used for unknown indication
     Route: 048
  16. ACYCLOVIR [Concomitant]
     Active Substance: ACYCLOVIR
     Indication: Product used for unknown indication
     Route: 048
  17. TRAVOPROST [Concomitant]
     Active Substance: TRAVOPROST
     Indication: Product used for unknown indication
     Dosage: 1 DROP
     Route: 047
  18. SODIUM CHLORIDE [Concomitant]
     Active Substance: SODIUM CHLORIDE
     Indication: Product used for unknown indication
     Route: 042
     Dates: start: 20210825, end: 20210825
  19. CLEVIDIPINE [Concomitant]
     Active Substance: CLEVIDIPINE
     Indication: Product used for unknown indication
     Route: 042
     Dates: start: 20210825, end: 20210825
  20. ETOMIDATE [Concomitant]
     Active Substance: ETOMIDATE
     Indication: Product used for unknown indication
     Route: 042
     Dates: start: 20210825, end: 20210825
  21. SUCCINYLCHOLINE CHLORIDE [Concomitant]
     Active Substance: SUCCINYLCHOLINE CHLORIDE
     Indication: Product used for unknown indication
     Route: 042
     Dates: start: 20210825, end: 20210825
  22. LORAZEPAM [Concomitant]
     Active Substance: LORAZEPAM
     Indication: Product used for unknown indication
     Route: 042
     Dates: start: 20210825, end: 20210825
  23. MORPHINE SULFATE [Concomitant]
     Active Substance: MORPHINE SULFATE
     Indication: Product used for unknown indication
     Route: 042
     Dates: start: 20210825, end: 20210825

REACTIONS (7)
  - Death [Fatal]
  - Acute respiratory failure [Unknown]
  - Myasthenia gravis [Unknown]
  - Anaemia [Unknown]
  - Leukopenia [Unknown]
  - Weight decreased [Recovered/Resolved]
  - Haemorrhage intracranial [Unknown]

NARRATIVE: CASE EVENT DATE: 20200401
